FAERS Safety Report 17034306 (Version 7)
Quarter: 2022Q2

REPORT INFORMATION
  Report Type: Spontaneous
  Country: CA (occurrence: CA)
  Receive Date: 20191115
  Receipt Date: 20220429
  Transmission Date: 20220721
  Serious: Yes (Hospitalization, Other)
  Sender: FDA-Public Use
  Company Number: CA-MLMSERVICE-20191028-2020714-1

PATIENT
  Age: 32 Year
  Sex: Female

DRUGS (4)
  1. TOPIRAMATE [Suspect]
     Active Substance: TOPIRAMATE
     Indication: Headache
     Dosage: 25 MILLIGRAM, TWO TIMES A DAY
     Route: 048
  2. TOPIRAMATE [Suspect]
     Active Substance: TOPIRAMATE
     Indication: Idiopathic intracranial hypertension
  3. ACETAZOLAMIDE [Suspect]
     Active Substance: ACETAZOLAMIDE
     Indication: Headache
     Dosage: 500 MILLIGRAM, TWO TIMES A DAY
     Route: 065
  4. ACETAZOLAMIDE [Suspect]
     Active Substance: ACETAZOLAMIDE
     Indication: Idiopathic intracranial hypertension
     Dosage: 1500 MILLIGRAM, ONCE A DAY
     Route: 065

REACTIONS (9)
  - Hyperventilation [Recovered/Resolved]
  - Metabolic acidosis [Recovered/Resolved]
  - Off label use [Recovered/Resolved]
  - Product use in unapproved indication [Recovered/Resolved]
  - Dyspnoea [Recovered/Resolved]
  - Tachypnoea [Unknown]
  - Drug ineffective [Unknown]
  - Hypophosphataemia [Unknown]
  - Respiratory alkalosis [Unknown]
